FAERS Safety Report 10747025 (Version 3)
Quarter: 2015Q2

REPORT INFORMATION
  Report Type: Spontaneous
  Country: US (occurrence: US)
  Receive Date: 20150129
  Receipt Date: 20150511
  Transmission Date: 20150821
  Serious: Yes (Other)
  Sender: FDA-Public Use
  Company Number: US-BEH-2015048124

PATIENT
  Age: 71 Year
  Sex: Male
  Weight: 72 kg

DRUGS (37)
  1. MUCINEX ER [Concomitant]
  2. CNP VITAMIN C ER [Concomitant]
  3. METOPROLOL TARTRATE. [Concomitant]
     Active Substance: METOPROLOL TARTRATE
  4. BISACODYL EC [Concomitant]
  5. DALIRESP [Concomitant]
     Active Substance: ROFLUMILAST
  6. ZEMAIRA [Suspect]
     Active Substance: .ALPHA.1-PROTEINASE INHIBITOR HUMAN
     Indication: ALPHA-1 ANTI-TRYPSIN DEFICIENCY
     Dosage: 994 MG/ML
     Route: 042
  7. ADVAIR HFA [Concomitant]
     Active Substance: FLUTICASONE PROPIONATE\SALMETEROL XINAFOATE
  8. CALCIUM + VITAMIN D [Concomitant]
     Active Substance: CALCIUM\VITAMIN D
  9. TRIAMCINOLONE [Concomitant]
     Active Substance: TRIAMCINOLONE
  10. SODIUM CHLORIDE. [Concomitant]
     Active Substance: SODIUM CHLORIDE
  11. PROVENTIL [Concomitant]
     Active Substance: ALBUTEROL
  12. PLAVIX [Concomitant]
     Active Substance: CLOPIDOGREL BISULFATE
  13. DIPHENHYDRAMINE [Concomitant]
     Active Substance: DIPHENHYDRAMINE
  14. METFORMIN [Concomitant]
     Active Substance: METFORMIN HYDROCHLORIDE
  15. ALBUTEROL. [Concomitant]
     Active Substance: ALBUTEROL
  16. LORATADINE. [Concomitant]
     Active Substance: LORATADINE
  17. SIMVASTATIN. [Concomitant]
     Active Substance: SIMVASTATIN
  18. ASPIRIN. [Concomitant]
     Active Substance: ASPIRIN
  19. AMBIEN CR [Concomitant]
     Active Substance: ZOLPIDEM TARTRATE
  20. BACTRIM DS [Concomitant]
     Active Substance: SULFAMETHOXAZOLE\TRIMETHOPRIM
  21. DICLOXACILLIN [Concomitant]
     Active Substance: DICLOXACILLIN
  22. COMBIVENT [Concomitant]
     Active Substance: ALBUTEROL SULFATE\IPRATROPIUM BROMIDE
  23. CITALOPRAM [Concomitant]
     Active Substance: CITALOPRAM HYDROBROMIDE
  24. CREON DR [Concomitant]
  25. ZEMAIRA [Suspect]
     Active Substance: .ALPHA.1-PROTEINASE INHIBITOR HUMAN
     Route: 042
  26. ZITHROMAX [Concomitant]
     Active Substance: AZITHROMYCIN DIHYDRATE
  27. MORPHINE SULFATE. [Concomitant]
     Active Substance: MORPHINE SULFATE
  28. IPRATROPIUM BR [Concomitant]
  29. EPIPEN [Concomitant]
     Active Substance: EPINEPHRINE
  30. PAXIL [Concomitant]
     Active Substance: PAROXETINE HYDROCHLORIDE
  31. LASIX [Concomitant]
     Active Substance: FUROSEMIDE
  32. GABAPENTIN. [Concomitant]
     Active Substance: GABAPENTIN
  33. DOCUSATE CAL [Concomitant]
  34. PUB RANITIDINE [Concomitant]
  35. OXYCODONE [Concomitant]
     Active Substance: OXYCODONE
  36. AMOXICILLIN. [Concomitant]
     Active Substance: AMOXICILLIN
  37. KLOR-CON [Concomitant]
     Active Substance: POTASSIUM CHLORIDE

REACTIONS (4)
  - Haemoptysis [Unknown]
  - Haemoptysis [Unknown]
  - Cough [Unknown]
  - Lung neoplasm malignant [Unknown]

NARRATIVE: CASE EVENT DATE: 20150113
